FAERS Safety Report 4481221-9 (Version None)
Quarter: 2004Q4

REPORT INFORMATION
  Report Type: 
  Country: None (occurrence: None)
  Receive Date: 20040923
  Receipt Date: 20040726
  Transmission Date: 20050328
  Serious: No
  Sender: FDA-Public Use
  Company Number: USA040157243

PATIENT
  Age: 79 Year
  Sex: Female
  Weight: 57 kg

DRUGS (3)
  1. FORTEO [Suspect]
     Indication: OSTEOPOROSIS
     Dosage: 20 UG DAY
     Dates: start: 20040119, end: 20040722
  2. FORTEO [Suspect]
     Indication: STRESS FRACTURE
     Dosage: 20 UG DAY
     Dates: start: 20040119, end: 20040722
  3. ALLERGY SHOT [Concomitant]

REACTIONS (4)
  - DIZZINESS [None]
  - INJECTION SITE HAEMORRHAGE [None]
  - NAUSEA [None]
  - WEIGHT DECREASED [None]
